FAERS Safety Report 22139698 (Version 2)
Quarter: 2023Q1

REPORT INFORMATION
  Report Type: Spontaneous
  Country: US (occurrence: US)
  Receive Date: 20230327
  Receipt Date: 20230328
  Transmission Date: 20230418
  Serious: No
  Sender: FDA-Public Use
  Company Number: US-002147023-NVSC2023US069931

PATIENT
  Age: 59 Year
  Sex: Female

DRUGS (3)
  1. CARBAMAZEPINE [Suspect]
     Active Substance: CARBAMAZEPINE
     Indication: Trigeminal neuralgia
     Route: 065
  2. GABAPENTIN [Suspect]
     Active Substance: GABAPENTIN
     Indication: Trigeminal neuralgia
     Dosage: 500 MG (FOR A 4 HOUR PERIOD OF TIME)
     Route: 065
  3. GABAPENTIN [Suspect]
     Active Substance: GABAPENTIN
     Dosage: 200 MG (FOR A 4 HOUR PERIOD OF TIME)
     Route: 065

REACTIONS (1)
  - Neuralgia [Unknown]
